FAERS Safety Report 20462807 (Version 2)
Quarter: 2025Q4

REPORT INFORMATION
  Report Type: Report from Study
  Country: US (occurrence: US)
  Receive Date: 20220211
  Receipt Date: 20251127
  Transmission Date: 20260117
  Serious: No
  Sender: MERCK SHARP & DOHME LLC
  Company Number: US-009507513-2202USA003139

PATIENT
  Age: 88 Year
  Sex: Female

DRUGS (2)
  1. JANUVIA [Suspect]
     Active Substance: SITAGLIPTIN PHOSPHATE
     Dosage: TAKE ONE TABLET BY MOUTH DAILY
     Route: 048
     Dates: end: 20251105
  2. JANUVIA [Suspect]
     Active Substance: SITAGLIPTIN PHOSPHATE
     Dosage: DOSE DESCRIPTION : ONCE DAILY?DAILY DOSE : 1 DOSAGE FORM?CONCENTRATION: 100 MILLIGRAM
     Route: 048
     Dates: end: 20220207

REACTIONS (4)
  - Stress [Unknown]
  - Product dose omission issue [Unknown]
  - Product dose omission issue [Unknown]
  - Product use issue [Unknown]

NARRATIVE: CASE EVENT DATE: 20220207
